FAERS Safety Report 20880651 (Version 4)
Quarter: 2022Q2

REPORT INFORMATION
  Report Type: Report from Study
  Country: NZ (occurrence: NZ)
  Receive Date: 20220526
  Receipt Date: 20220616
  Transmission Date: 20220721
  Serious: Yes (Other)
  Sender: FDA-Public Use
  Company Number: NZ-ABBVIE-22K-118-4410836-00

PATIENT
  Age: 24 Year
  Sex: Male
  Weight: 69.4 kg

DRUGS (13)
  1. PLACEBO [Suspect]
     Active Substance: UNSPECIFIED INGREDIENT
     Indication: Dermatitis atopic
     Route: 048
     Dates: start: 20190903, end: 20191225
  2. UPADACITINIB [Suspect]
     Active Substance: UPADACITINIB
     Indication: Dermatitis atopic
     Route: 048
     Dates: start: 20191226, end: 20220524
  3. BETAMETHASONE VALERATE [Suspect]
     Active Substance: BETAMETHASONE VALERATE
     Indication: Dermatitis atopic
     Route: 061
     Dates: start: 20190903, end: 20190923
  4. HYDROCORTISONE [Suspect]
     Active Substance: HYDROCORTISONE
     Indication: Dermatitis atopic
     Route: 061
     Dates: start: 20190924, end: 20191001
  5. VENTOLIN [Concomitant]
     Active Substance: ALBUTEROL SULFATE
     Indication: Asthma
     Route: 055
     Dates: start: 2014
  6. BREO ELLIPTA [Concomitant]
     Active Substance: FLUTICASONE FUROATE\VILANTEROL TRIFENATATE
     Indication: Asthma
     Route: 055
     Dates: start: 2016
  7. CETOMACROGOL 90% AND GLYCEROL CREAM 10% [Concomitant]
     Indication: Dry skin prophylaxis
     Dosage: AS NEEDED
     Route: 061
     Dates: start: 20191220
  8. SERETIDE [Concomitant]
     Active Substance: FLUTICASONE PROPIONATE\SALMETEROL XINAFOATE
     Indication: Asthma
     Route: 055
     Dates: start: 20200608
  9. BETAMETHASONE VALERATE 0.1% OINTMENT [Concomitant]
     Indication: Dermatitis atopic
     Route: 061
     Dates: start: 20210713
  10. BETAMETHASONE VALERATE 0.1% OINTMENT [Concomitant]
     Route: 061
     Dates: start: 20210216, end: 20210713
  11. LORATADINE [Concomitant]
     Active Substance: LORATADINE
     Indication: Seasonal allergy
     Route: 048
     Dates: start: 20220221
  12. FUCICORT CREAM [Concomitant]
     Indication: Eczema infected
     Dosage: AS REQUIRED
     Route: 061
     Dates: start: 20220221
  13. FLUTICASONE PROPIONATE [Concomitant]
     Active Substance: FLUTICASONE PROPIONATE
     Indication: Nasal polyps
     Route: 045
     Dates: start: 20220408

REACTIONS (2)
  - Diffuse large B-cell lymphoma [Not Recovered/Not Resolved]
  - Lymphadenopathy [Not Recovered/Not Resolved]

NARRATIVE: CASE EVENT DATE: 20220509
